FAERS Safety Report 21159503 (Version 1)
Quarter: 2022Q3

REPORT INFORMATION
  Report Type: Spontaneous
  Country: CN (occurrence: CN)
  Receive Date: 20220802
  Receipt Date: 20220802
  Transmission Date: 20221027
  Serious: Yes (Other)
  Sender: FDA-Public Use
  Company Number: None

PATIENT
  Age: 20 Year
  Sex: Male
  Weight: 61.5 kg

DRUGS (9)
  1. CYCLOPHOSPHAMIDE [Suspect]
     Active Substance: CYCLOPHOSPHAMIDE
     Indication: Acute lymphocytic leukaemia
     Dosage: 500 MG, ONCE/2 DAYS (0.9% SODIUM CHLORIDE INJECTION (250 ML) + CYCLOPHOSPHAMIDE FOR INJECTION (500 M
     Route: 050
     Dates: start: 20220702, end: 20220704
  2. SODIUM CHLORIDE [Suspect]
     Active Substance: SODIUM CHLORIDE
     Indication: Medication dilution
     Dosage: 250 ML, ONCE/2 DAYS, (0.9% SODIUM CHLORIDE INJECTION (250 ML) + CYCLOPHOSPHAMIDE FOR INJECTION (500
     Route: 050
     Dates: start: 20220702, end: 20220704
  3. SODIUM CHLORIDE [Suspect]
     Active Substance: SODIUM CHLORIDE
     Dosage: 90 ML ONCE (SODIUM CHLORIDE INJECTION (90 ML) + CYTARABINE HYDROCHLORIDE FOR INJECTION (50 MG) INTRA
     Route: 037
     Dates: start: 20220708, end: 20220708
  4. SODIUM CHLORIDE [Suspect]
     Active Substance: SODIUM CHLORIDE
     Dosage: 50 ML, ONCE/7 DAYS (0.9% SODIUM CHLORIDE INJECTION (50 ML) + VINCRISTINE SULFATE FOR INJECTION (2 MG
     Route: 041
     Dates: start: 20220705, end: 20220712
  5. DEXTROSE MONOHYDRATE [Suspect]
     Active Substance: DEXTROSE MONOHYDRATE
     Indication: Medication dilution
     Dosage: 500 ML , ONCE (GLUCOSE INJECTION (500 ML) + PIRARUBICIN HYDROCHLORIDE FOR INJECTION (50 MG) INTRAPUM
     Route: 050
     Dates: start: 20220705, end: 20220705
  6. METHOTREXATE [Suspect]
     Active Substance: METHOTREXATE
     Indication: Acute lymphocytic leukaemia
     Dosage: METHOTREXATE FOR INJECTION (10 MG), ONCE
     Route: 037
     Dates: start: 20220703, end: 20220703
  7. PIRARUBICIN HYDROCHLORIDE [Suspect]
     Active Substance: PIRARUBICIN HYDROCHLORIDE
     Indication: Acute lymphocytic leukaemia
     Dosage: 50 MG, ONCE (GLUCOSE INJECTION (500 ML) + PIRARUBICIN HYDROCHLORIDE FOR INJECTION (50 MG) INTRAPUMP
     Route: 050
     Dates: start: 20220705, end: 20220705
  8. CYTARABINE HYDROCHLORIDE [Suspect]
     Active Substance: CYTARABINE HYDROCHLORIDE
     Indication: Acute lymphocytic leukaemia
     Dosage: 50 MG, ONCE (SODIUM CHLORIDE INJECTION (90 ML) + CYTARABINE HYDROCHLORIDE FOR INJECTION (50 MG) INTR
     Route: 037
     Dates: start: 20220708, end: 20220708
  9. VINCRISTINE SULFATE [Suspect]
     Active Substance: VINCRISTINE SULFATE
     Indication: Acute lymphocytic leukaemia
     Dosage: 2 MG, ONCE/7 DAYS, (0.9% SODIUM CHLORIDE INJECTION (50 ML) + VINCRISTINE SULFATE FOR INJECTION (2 MG
     Route: 041
     Dates: start: 20220705, end: 20220712

REACTIONS (2)
  - Myelosuppression [Recovering/Resolving]
  - Thrombocytopenia [Recovering/Resolving]

NARRATIVE: CASE EVENT DATE: 20220714
